FAERS Safety Report 6336495-6 (Version None)
Quarter: 2009Q3

REPORT INFORMATION
  Report Type: 
  Country: None (occurrence: None)
  Receive Date: 20090901
  Receipt Date: 20090831
  Transmission Date: 20100115
  Serious: Yes (Hospitalization)
  Sender: FDA-Public Use
  Company Number: D0062772A

PATIENT
  Age: 78 Year
  Sex: Male
  Weight: 92 kg

DRUGS (9)
  1. ZINACEF [Suspect]
     Indication: INFECTION PROPHYLAXIS
     Dosage: 1.5G PER DAY
     Route: 042
     Dates: start: 20090706, end: 20090708
  2. PANTOZOL [Suspect]
     Indication: PROPHYLAXIS
     Dosage: 40MG PER DAY
     Route: 048
     Dates: start: 20090706
  3. AMPICILLIN AND SULBACTAM [Suspect]
     Indication: INFECTION PROPHYLAXIS
     Dosage: 1500MG PER DAY
     Route: 048
     Dates: start: 20090709, end: 20090716
  4. FALITHROM [Concomitant]
     Indication: PULMONARY EMBOLISM
     Route: 048
     Dates: start: 20090803, end: 20090806
  5. HYDROCHLOROTHIAZIDE [Concomitant]
     Dosage: 12.5MG PER DAY
     Route: 048
     Dates: start: 20080601
  6. L-THYROXIN [Concomitant]
     Dosage: 100MCG PER DAY
     Route: 048
     Dates: start: 20070101
  7. RAMIPRIL [Concomitant]
     Dosage: 5MG PER DAY
     Route: 048
     Dates: start: 20090601
  8. SIMVASTATIN [Concomitant]
     Indication: CAROTID ARTERY STENOSIS
     Dosage: 20MG PER DAY
     Route: 048
     Dates: start: 20090601
  9. TAMSULOSIN [Concomitant]
     Dosage: .4MG PER DAY
     Route: 048
     Dates: start: 20090301

REACTIONS (4)
  - ARTHRALGIA [None]
  - DIARRHOEA [None]
  - FEELING HOT [None]
  - HOSPITALISATION [None]
